FAERS Safety Report 9767544 (Version 1)
Quarter: 2013Q4

REPORT INFORMATION
  Report Type: Spontaneous
  Country: US (occurrence: US)
  Receive Date: 20131217
  Receipt Date: 20131217
  Transmission Date: 20140711
  Serious: Yes (Hospitalization)
  Sender: FDA-Public Use
  Company Number: US-GILEAD-2009-0024171

PATIENT
  Age: 59 Year
  Sex: Female
  Weight: 70.31 kg

DRUGS (3)
  1. VIREAD [Suspect]
     Indication: HEPATITIS B
     Route: 048
  2. DIOVAN [Concomitant]
     Indication: HYPERTENSION
     Dates: start: 2006
  3. ACTOS [Concomitant]
     Indication: TYPE 2 DIABETES MELLITUS
     Dates: start: 2008

REACTIONS (2)
  - Abdominal pain [Recovered/Resolved]
  - Nausea [Recovered/Resolved]
